FAERS Safety Report 5590596-9 (Version None)
Quarter: 2008Q1

REPORT INFORMATION
  Report Type: 
  Country: None (occurrence: None)
  Receive Date: 20080110
  Receipt Date: 20071228
  Transmission Date: 20080703
  Serious: Yes (Death, Hospitalization, Other)
  Sender: FDA-Public Use
  Company Number: CERZ-11630

PATIENT
  Age: 45 Year
  Sex: Male
  Weight: 85.2 kg

DRUGS (2)
  1. CEREZYME [Suspect]
     Indication: GAUCHER'S DISEASE
     Dosage: 4400 U,Q3W, INTRAVENOUS; 4600 U, Q2W, INTRAVENOUS
     Route: 042
     Dates: end: 20071120
  2. CEREZYME [Suspect]
     Indication: GAUCHER'S DISEASE
     Dosage: 4400 U,Q3W, INTRAVENOUS; 4600 U, Q2W, INTRAVENOUS
     Route: 042
     Dates: start: 20000727

REACTIONS (3)
  - LUNG DISORDER [None]
  - METASTASES TO LIVER [None]
  - OESOPHAGEAL CARCINOMA [None]
